FAERS Safety Report 4729402-0 (Version None)
Quarter: 2005Q3

REPORT INFORMATION
  Report Type: 
  Country: None (occurrence: None)
  Receive Date: 20050721
  Receipt Date: 20050504
  Transmission Date: 20060218
  Serious: No
  Sender: FDA-Public Use
  Company Number: 2005SP000565

PATIENT
  Age: 45 Year
  Sex: Female
  Weight: 106.5953 kg

DRUGS (6)
  1. LUNESTA [Suspect]
     Indication: NARCOLEPSY
     Dosage: 3 MG;HS;ORAL;  4.5 MG;HS;ORAL
     Route: 048
     Dates: start: 20050503, end: 20050501
  2. LUNESTA [Suspect]
     Indication: NARCOLEPSY
     Dosage: 3 MG;HS;ORAL;  4.5 MG;HS;ORAL
     Route: 048
     Dates: start: 20050501
  3. EFFEXOR [Concomitant]
  4. PRILOSEC [Concomitant]
  5. ANAPROX [Concomitant]
  6. DRIXORAL [Concomitant]

REACTIONS (4)
  - HEADACHE [None]
  - MIDDLE INSOMNIA [None]
  - NAUSEA [None]
  - PAIN IN EXTREMITY [None]
